FAERS Safety Report 7107377-7 (Version None)
Quarter: 2010Q4

REPORT INFORMATION
  Report Type: 
  Country: None (occurrence: None)
  Receive Date: 20101112
  Receipt Date: 20101112
  Transmission Date: 20110411
  Serious: Yes (Life-Threatening, Hospitalization)
  Sender: FDA-Public Use
  Company Number: None

PATIENT
  Sex: Female
  Weight: 43.0917 kg

DRUGS (2)
  1. ULTRAM [Suspect]
     Indication: CARPAL TUNNEL SYNDROME
     Dosage: 50MG QID PO
     Route: 048
     Dates: start: 20081201, end: 20101107
  2. ULTRAM [Suspect]
     Indication: PAIN IN EXTREMITY
     Dosage: 50MG QID PO
     Route: 048
     Dates: start: 20081201, end: 20101107

REACTIONS (4)
  - CONVULSION [None]
  - EUPHORIC MOOD [None]
  - MIGRAINE [None]
  - WEIGHT DECREASED [None]
